FAERS Safety Report 16770335 (Version 1)
Quarter: 2019Q3

REPORT INFORMATION
  Report Type: Spontaneous
  Country: US (occurrence: US)
  Receive Date: 20190715
  Receipt Date: 20190715
  Transmission Date: 20191005
  Serious: Yes (Hospitalization)
  Sender: FDA-Public Use
  Company Number: None

PATIENT
  Age: 71 Year
  Sex: Male

DRUGS (1)
  1. GLOBULIN, IMMUNE [Suspect]
     Active Substance: HUMAN IMMUNOGLOBULIN G
     Indication: PLASMA CELL MYELOMA
     Dates: start: 20120625, end: 20190625

REACTIONS (5)
  - Urticaria [None]
  - Wheezing [None]
  - Cough [None]
  - Angioedema [None]
  - Pruritus [None]

NARRATIVE: CASE EVENT DATE: 20190625
